FAERS Safety Report 23429870 (Version 2)
Quarter: 2024Q1

REPORT INFORMATION
  Report Type: Spontaneous
  Country: CN (occurrence: CN)
  Receive Date: 20240122
  Receipt Date: 20240308
  Transmission Date: 20240409
  Serious: Yes (Hospitalization, Other)
  Sender: FDA-Public Use
  Company Number: CN-009507513-2401CHN009843

PATIENT
  Age: 72 Year
  Sex: Male
  Weight: 72.6 kg

DRUGS (1)
  1. KEYTRUDA [Suspect]
     Active Substance: PEMBROLIZUMAB
     Indication: Squamous cell carcinoma of lung
     Dosage: 200 MILLIGRAM, Q3W
     Route: 042
     Dates: start: 20230901, end: 20231215

REACTIONS (5)
  - Immune-mediated lung disease [Recovering/Resolving]
  - Pathological fracture [Unknown]
  - Suffocation feeling [Recovering/Resolving]
  - Blood glucose increased [Recovered/Resolved]
  - Decreased activity [Recovering/Resolving]

NARRATIVE: CASE EVENT DATE: 20240103
